FAERS Safety Report 11798511 (Version 1)
Quarter: 2015Q4

REPORT INFORMATION
  Report Type: Spontaneous
  Country: US (occurrence: US)
  Receive Date: 20151203
  Receipt Date: 20151203
  Transmission Date: 20160305
  Serious: No
  Sender: FDA-Public Use
  Company Number: US-REGENERON PHARMACEUTICALS, INC.-2015-11790

PATIENT

DRUGS (8)
  1. EYLEA [Suspect]
     Active Substance: AFLIBERCEPT
     Dosage: 1 MG MILLIGRAM(S), UNK
     Dates: start: 20150615, end: 20150615
  2. EYLEA [Suspect]
     Active Substance: AFLIBERCEPT
     Indication: NEOVASCULAR AGE-RELATED MACULAR DEGENERATION
     Dosage: 1 MG MILLIGRAM(S), UNK
     Dates: start: 20150223
  3. EYLEA [Suspect]
     Active Substance: AFLIBERCEPT
     Dosage: 1 MG MILLIGRAM(S), UNK
     Dates: start: 20150511, end: 20150511
  4. IRON [Concomitant]
     Active Substance: IRON
     Dosage: UNK
  5. EYLEA [Suspect]
     Active Substance: AFLIBERCEPT
     Dosage: 1 MG MILLIGRAM(S), UNK
     Dates: start: 20150330, end: 20150330
  6. VITAMIN D3 [Concomitant]
     Active Substance: CHOLECALCIFEROL
     Dosage: UNK
  7. SYNTHROID [Concomitant]
     Active Substance: LEVOTHYROXINE SODIUM
     Dosage: 50 MICROGRAM(S), UNK
  8. PRESERVISION [Concomitant]
     Active Substance: MINERALS\VITAMINS
     Dosage: UNK

REACTIONS (1)
  - Incorrect dose administered [Unknown]

NARRATIVE: CASE EVENT DATE: 20150223
